FAERS Safety Report 8224471-8 (Version None)
Quarter: 2012Q1

REPORT INFORMATION
  Report Type: 
  Country: None (occurrence: None)
  Receive Date: 20120321
  Receipt Date: 20120312
  Transmission Date: 20120608
  Serious: Yes (Other)
  Sender: FDA-Public Use
  Company Number: PHHY2012SE022832

PATIENT
  Age: 63 Year
  Sex: Male

DRUGS (8)
  1. CLOZAPINE [Suspect]
     Dosage: 50 MG, IN THE MORNING
     Route: 048
  2. CLOZAPINE [Suspect]
     Dosage: 100 MG, IN THE EVENING
     Route: 048
  3. CLOZAPINE [Suspect]
     Dosage: 400 MG, AT NIGHT
     Route: 048
  4. ENALAPRIL ASTIMEX [Concomitant]
  5. METHYLSCOPOLAMINE [Concomitant]
  6. METOPROLOL SUCCINATE [Concomitant]
  7. NOZINAN [Concomitant]
  8. CISORDINOL [Concomitant]

REACTIONS (4)
  - AGGRESSION [None]
  - HEART RATE INCREASED [None]
  - DIZZINESS [None]
  - BLOOD PRESSURE INCREASED [None]
